FAERS Safety Report 5581530-6 (Version None)
Quarter: 2008Q1

REPORT INFORMATION
  Report Type: 
  Country: None (occurrence: None)
  Receive Date: 20080104
  Receipt Date: 20070723
  Transmission Date: 20080703
  Serious: Yes (Hospitalization, Other)
  Sender: FDA-Public Use
  Company Number: US-ASTRAZENECA-2006UW03269

PATIENT
  Age: 42 Year
  Sex: Male
  Weight: 124.1 kg

DRUGS (29)
  1. SEROQUEL [Suspect]
     Indication: DEPRESSION
     Route: 048
     Dates: start: 20030919
  2. SEROQUEL [Suspect]
     Route: 048
     Dates: start: 19990101, end: 20020712
  3. ZYPREXA [Concomitant]
     Dates: start: 20020101, end: 20030101
  4. CLONAZEPAM [Concomitant]
  5. CELEXA [Concomitant]
  6. EFFEXOR XR [Concomitant]
  7. ZONEGRAN [Concomitant]
  8. LEXAPRO [Concomitant]
  9. METRONIDAZOLE [Concomitant]
  10. DOXYCYCLINE [Concomitant]
  11. HYOSCYAMINE [Concomitant]
  12. DIAZEPAM [Concomitant]
  13. METHYLPREDNISOLONE [Concomitant]
  14. VYTORIN [Concomitant]
  15. NITROGLYCERIN [Concomitant]
  16. METOPROLOL TARTRATE [Concomitant]
  17. LISINOPRIL [Concomitant]
  18. ASPIRIN [Concomitant]
  19. PLAVIX [Concomitant]
  20. NAPROSYN [Concomitant]
  21. SOMA [Concomitant]
  22. FLAGYL [Concomitant]
  23. AMBIEN [Concomitant]
  24. ZESTRIL [Concomitant]
  25. ELAVIL [Concomitant]
  26. PROCTOFOAM [Concomitant]
  27. BENTYL [Concomitant]
  28. LEVBID [Concomitant]
  29. TRAZODONE HCL [Concomitant]

REACTIONS (5)
  - CARDIAC DISORDER [None]
  - DIABETES MELLITUS [None]
  - DIABETIC COMA [None]
  - DIABETIC KETOACIDOSIS [None]
  - WEIGHT INCREASED [None]
